FAERS Safety Report 10040658 (Version 2)
Quarter: 2014Q2

REPORT INFORMATION
  Report Type: Spontaneous
  Country: US (occurrence: US)
  Receive Date: 20140327
  Receipt Date: 20140507
  Transmission Date: 20141212
  Serious: Yes (Other)
  Sender: FDA-Public Use
  Company Number: US-TEVA-471279USA

PATIENT
  Age: 24 Year
  Sex: Female
  Weight: 49.94 kg

DRUGS (4)
  1. PARAGARD 380A [Suspect]
     Indication: CONTRACEPTION
     Route: 015
     Dates: start: 20120823
  2. VITAMIN E [Concomitant]
     Indication: PRODUCT USED FOR UNKNOWN INDICATION
  3. BIOTIN [Concomitant]
     Indication: PRODUCT USED FOR UNKNOWN INDICATION
  4. KRILL OIL [Concomitant]
     Indication: PRODUCT USED FOR UNKNOWN INDICATION

REACTIONS (6)
  - Device dislocation [Unknown]
  - Medical device complication [Unknown]
  - Vaginal haemorrhage [Unknown]
  - Dysmenorrhoea [Unknown]
  - Pelvic pain [Unknown]
  - Device expulsion [Unknown]
